FAERS Safety Report 22005111 (Version 1)
Quarter: 2023Q1

REPORT INFORMATION
  Report Type: Spontaneous
  Country: US (occurrence: None)
  Receive Date: 20230216
  Receipt Date: 20230216
  Transmission Date: 20230418
  Serious: Yes (Other)
  Sender: FDA-Public Use
  Company Number: None

PATIENT
  Age: 5 Year
  Sex: Male
  Weight: 19.4 kg

DRUGS (2)
  1. ALPROLIX [Suspect]
     Active Substance: EFTRENONACOG ALFA
     Indication: Factor IX deficiency
     Dosage: FREQUENCY : ONCE;?
     Route: 042
     Dates: start: 20230127
  2. ALPROLIX [Suspect]
     Active Substance: EFTRENONACOG ALFA
     Indication: Factor IX deficiency
     Dosage: OTHER FREQUENCY : ONCE;?
     Route: 042
     Dates: start: 20230127

REACTIONS (6)
  - Oropharyngeal pain [None]
  - Cough [None]
  - Rash [None]
  - Rash [None]
  - Oxygen saturation decreased [None]
  - Infusion related reaction [None]

NARRATIVE: CASE EVENT DATE: 20230202
